FAERS Safety Report 9216186 (Version 1)
Quarter: 2013Q2

REPORT INFORMATION
  Report Type: Spontaneous
  Country: BR (occurrence: None)
  Receive Date: 20130403
  Receipt Date: 20130403
  Transmission Date: 20140414
  Serious: Yes (Other)
  Sender: FDA-Public Use
  Company Number: VAL_02268_2013

PATIENT
  Age: 72 Year
  Sex: Female

DRUGS (2)
  1. SELOZOK [Suspect]
     Indication: PRODUCT USED FOR UNKNOWN INDICATION
     Dosage: (DF)?(UNKNOWN)
  2. APRESOLIN [Suspect]
     Indication: ARRHYTHMIA
     Dosage: (3  DF,  [DAILY]  ORAL)?(??/??/2013  TO  CONTINUING)
     Route: 048
     Dates: start: 2013, end: 2013

REACTIONS (5)
  - Tremor [None]
  - Blood pressure diastolic increased [None]
  - Drug dose omission [None]
  - Wrong technique in drug usage process [None]
  - Hypotension [None]
